FAERS Safety Report 14301479 (Version 2)
Quarter: 2017Q4

REPORT INFORMATION
  Report Type: Spontaneous
  Country: JP (occurrence: JP)
  Receive Date: 20171219
  Receipt Date: 20171227
  Transmission Date: 20180321
  Serious: Yes (Death, Hospitalization, Other)
  Sender: FDA-Public Use
  Company Number: JP-GLAXOSMITHKLINE-JP2017JPN193800

PATIENT
  Age: 86 Year
  Sex: Male

DRUGS (10)
  1. LIXIANA [Concomitant]
     Active Substance: EDOXABAN TOSYLATE
     Dosage: 30 MG, QD
  2. AVOLVE [Suspect]
     Active Substance: DUTASTERIDE
     Dosage: UNK
     Route: 048
     Dates: start: 20171207, end: 20171213
  3. URIEF [Concomitant]
     Active Substance: SILODOSIN
     Dosage: UNK
     Dates: start: 20171204
  4. ZALUTIA [Concomitant]
     Active Substance: TADALAFIL
     Dosage: UNK
     Dates: start: 20171204
  5. URSO [Concomitant]
     Active Substance: URSODIOL
     Dosage: 200 MG, QD
  6. MAGNESIUM OXIDE. [Concomitant]
     Active Substance: MAGNESIUM OXIDE
     Dosage: 2 DF, BID
  7. NOIDOUBLE TABLETS [Concomitant]
     Dosage: 25 MG, QD
  8. RABEPRAZOLE SODIUM. [Concomitant]
     Active Substance: RABEPRAZOLE SODIUM
     Dosage: 10 MG, QD
  9. ARTIST [Concomitant]
     Active Substance: CARVEDILOL
     Dosage: 10 MG, QD
  10. AZOSEMIDE [Concomitant]
     Active Substance: AZOSEMIDE
     Dosage: 30 MG, QD

REACTIONS (3)
  - Hypoxic-ischaemic encephalopathy [Unknown]
  - Interstitial lung disease [Fatal]
  - Altered state of consciousness [Unknown]

NARRATIVE: CASE EVENT DATE: 20171213
